FAERS Safety Report 6118133-0 (Version None)
Quarter: 2009Q1

REPORT INFORMATION
  Report Type: 
  Country: None (occurrence: None)
  Receive Date: 20090314
  Receipt Date: 20090220
  Transmission Date: 20090719
  Serious: No
  Sender: FDA-Public Use
  Company Number: US-ABBOTT-09P-163-0502235-00

PATIENT
  Sex: Male

DRUGS (2)
  1. HUMIRA [Suspect]
     Indication: CROHN'S DISEASE
     Dates: start: 20080205, end: 20090205
  2. HUMIRA [Suspect]
     Dates: start: 20090220

REACTIONS (4)
  - DIZZINESS [None]
  - FATIGUE [None]
  - PAIN [None]
  - SINUSITIS [None]
